FAERS Safety Report 25984417 (Version 1)
Quarter: 2025Q4

REPORT INFORMATION
  Report Type: Spontaneous
  Country: US (occurrence: US)
  Receive Date: 20251031
  Receipt Date: 20251031
  Transmission Date: 20260118
  Serious: Yes (Other)
  Sender: BAYER HEALTHCARE PHARMACEUTICALS INC.
  Company Number: US-BAYER-2025A075621

PATIENT
  Age: 32 Year
  Sex: Male

DRUGS (2)
  1. KOVALTRY [Suspect]
     Active Substance: ANTIHEMOPHILIC FACTOR, HUMAN RECOMBINANT
     Indication: Haemorrhage prophylaxis
     Dosage: 2142 UNITS, INFUSED  2000 TO 2200 UNITS  IVP
     Route: 042
  2. KOVALTRY [Suspect]
     Active Substance: ANTIHEMOPHILIC FACTOR, HUMAN RECOMBINANT
     Indication: Haemorrhage prophylaxis
     Dosage: INFUSE 1 DOSE
     Route: 042

REACTIONS (3)
  - Nephrolithiasis [None]
  - Nephrolithiasis [None]
  - Blood urine present [None]

NARRATIVE: CASE EVENT DATE: 20240405
